FAERS Safety Report 10184304 (Version 2)
Quarter: 2014Q2

REPORT INFORMATION
  Report Type: Spontaneous
  Country: HR (occurrence: HR)
  Receive Date: 20140520
  Receipt Date: 20140623
  Transmission Date: 20141212
  Serious: Yes (Other)
  Sender: FDA-Public Use
  Company Number: HR-MERCK-1405HRV009822

PATIENT
  Age: 73 Year
  Sex: Male

DRUGS (9)
  1. AERIUS [Suspect]
     Indication: COUGH
     Dosage: 5 MG, QD
     Route: 048
  2. AERIUS [Suspect]
     Indication: GASTROOESOPHAGEAL REFLUX DISEASE
  3. ZIPANTOLA [Concomitant]
     Dosage: 20 MG, QD
  4. OMNIC [Concomitant]
     Dosage: 0.4 MG, QD
  5. LORSILAN [Concomitant]
     Dosage: 2.5 MG, QD
  6. BUSCOL [Concomitant]
     Dosage: 10 MG, QD
  7. PROSCAR 5MG [Concomitant]
     Dosage: 5 MG, QD
  8. AMLOPIN (AMLODIPINE) [Concomitant]
     Dosage: 5 MG, QD
  9. METOPRAM [Concomitant]
     Dosage: 10 MG, OCCASIONALLY

REACTIONS (4)
  - Diplegia [Recovered/Resolved]
  - Gastrooesophageal reflux disease [Unknown]
  - Cough [Not Recovered/Not Resolved]
  - Abasia [Unknown]
